FAERS Safety Report 7917274-2 (Version None)
Quarter: 2011Q4

REPORT INFORMATION
  Report Type: 
  Country: None (occurrence: None)
  Receive Date: 20111116
  Receipt Date: 20111103
  Transmission Date: 20120403
  Serious: Yes (Hospitalization)
  Sender: FDA-Public Use
  Company Number: PHHO2011FR10476

PATIENT
  Sex: Male
  Weight: 81 kg

DRUGS (12)
  1. PROGRAF [Suspect]
     Dosage: 6 MG
     Route: 048
     Dates: start: 20110609
  2. TENORMIN [Concomitant]
     Dosage: 25 MG, UNK
     Route: 048
     Dates: start: 20110606
  3. MYCOPHENOLATE MOFETIL (CELLCEPT) [Suspect]
     Dosage: 500 MG
     Route: 048
     Dates: start: 20110613, end: 20110613
  4. MYCOPHENOLATE MOFETIL (CELLCEPT) [Suspect]
     Dosage: 1 G
     Route: 048
     Dates: start: 20110615
  5. PREDNISOLONE [Suspect]
     Indication: RENAL TRANSPLANT
     Dosage: 10 MG, UNK
     Route: 048
     Dates: start: 20110519
  6. PROGRAF [Suspect]
     Dosage: 4 MG
     Route: 048
  7. MYCOPHENOLATE MOFETIL (CELLCEPT) [Suspect]
     Dosage: 2 G
     Route: 048
     Dates: start: 20110528
  8. VALGANCICLOVIR [Concomitant]
  9. RAD 666 / RAD 001A [Suspect]
     Indication: RENAL TRANSPLANT
     Dosage: 4 MG
     Route: 048
     Dates: start: 20110522
  10. MYCOPHENOLATE MOFETIL (CELLCEPT) [Suspect]
     Indication: RENAL TRANSPLANT
     Dosage: 1 G
     Route: 048
     Dates: start: 20110518
  11. MYCOPHENOLATE MOFETIL (CELLCEPT) [Suspect]
     Dosage: 1.5 G
     Route: 048
     Dates: start: 20110614, end: 20110614
  12. RAD 666 / RAD 001A [Suspect]
     Dosage: 3.5 MG
     Route: 048
     Dates: start: 20110607, end: 20110608

REACTIONS (5)
  - IMPAIRED HEALING [None]
  - SCAR PAIN [None]
  - RENAL IMPAIRMENT [None]
  - LYMPHORRHOEA [None]
  - NEUTROPENIA [None]
